FAERS Safety Report 9415471 (Version 1)
Quarter: 2013Q3

REPORT INFORMATION
  Report Type: Spontaneous
  Country: US (occurrence: US)
  Receive Date: 20130723
  Receipt Date: 20130723
  Transmission Date: 20140515
  Serious: No
  Sender: FDA-Public Use
  Company Number: US-PFIZER INC-2013213369

PATIENT
  Age: 59 Year
  Sex: Female
  Weight: 88.44 kg

DRUGS (8)
  1. LYRICA [Suspect]
     Indication: DIABETIC NEPHROPATHY
     Dosage: UNK, 2X/DAY
     Dates: start: 20130701
  2. LORTAB [Suspect]
     Indication: PAIN
     Dosage: HYDROCODONE BITRATRATE 5MG/ ACETAMINOPHEN 500MG, UNK
  3. LORTAB [Suspect]
     Dosage: HYDROCODONE BITRATRATE 10MG/ ACETAMINOPHEN 500MG, UNK
  4. LORTAB [Suspect]
     Dosage: UNK
  5. GLIBURIDE/METFORMIN HYDROCHLORIDE [Concomitant]
     Indication: DIABETES MELLITUS
     Dosage: GLYBURIDE 5MG/ METFORMIN500MG, UNK
  6. LASIX [Concomitant]
     Indication: HYPERTENSION
     Dosage: 20 MG, 1X/DAY
  7. ASPIRIN [Concomitant]
     Indication: HYPERTENSION
     Dosage: UNK
  8. HYDROCHLOROTHIAZIDE [Concomitant]
     Indication: HYPERTENSION
     Dosage: 25 MG, UNK

REACTIONS (3)
  - Neuralgia [Unknown]
  - Drug resistance [Unknown]
  - Drug ineffective [Unknown]
